FAERS Safety Report 8118601-6 (Version None)
Quarter: 2012Q1

REPORT INFORMATION
  Report Type: 
  Country: None (occurrence: None)
  Receive Date: 20120202
  Receipt Date: 20120120
  Transmission Date: 20120608
  Serious: Yes (Hospitalization)
  Sender: FDA-Public Use
  Company Number: 1000024802

PATIENT
  Age: 80 Year
  Sex: Male

DRUGS (11)
  1. MEMANTINE HYDROCHLORIDE [Suspect]
     Indication: DISEASE PROGRESSION
     Dosage: 5 MG (5 MG, 1 IN 1 D),ORAL ; 10 MG (10 MG,1 IN 1 D),ORAL ; 15 MG (15 MG,1 IN 1 D),ORAL
     Route: 048
  2. MEMANTINE HYDROCHLORIDE [Suspect]
     Indication: DEMENTIA
     Dosage: 5 MG (5 MG, 1 IN 1 D),ORAL ; 10 MG (10 MG,1 IN 1 D),ORAL ; 15 MG (15 MG,1 IN 1 D),ORAL
     Route: 048
  3. MEMANTINE HYDROCHLORIDE [Suspect]
     Indication: DEMENTIA
     Dosage: 20 MG (20 MG,1 IN 1 D),ORAL
     Route: 048
     Dates: start: 20110701, end: 20110921
  4. MEMANTINE HYDROCHLORIDE [Suspect]
     Indication: DISEASE PROGRESSION
     Dosage: 20 MG (20 MG,1 IN 1 D),ORAL
     Route: 048
     Dates: start: 20110701, end: 20110921
  5. ASPIRIN [Concomitant]
  6. CRESTOR [Concomitant]
  7. ETICALM (ETIZOLAM) (ETIZOLAM) [Concomitant]
  8. IRGAS (IRSOGLADINE MALEATE) (IRSOGLADINE MALEATE) [Concomitant]
  9. ZONISAMIDE [Suspect]
     Indication: EPILEPSY
     Dosage: 400 MG (200 MG,2 IN 1 D),ORAL
     Route: 048
  10. AMLODIPINE (AMLODIPINE BESILATE) (AMLODIPINE BESILATE) [Concomitant]
  11. MAGMITT (MAGNESIUM OXIDE) (MAGNESIUM OXIDE) [Concomitant]

REACTIONS (7)
  - WHITE BLOOD CELL COUNT DECREASED [None]
  - WHITE BLOOD CELL COUNT INCREASED [None]
  - PYREXIA [None]
  - NEUTROPHIL COUNT INCREASED [None]
  - ASPARTATE AMINOTRANSFERASE INCREASED [None]
  - BAND NEUTROPHIL COUNT INCREASED [None]
  - NEUTROPENIA [None]
